FAERS Safety Report 8877089 (Version 3)
Quarter: 2012Q4

REPORT INFORMATION
  Report Type: Report from Study
  Country: BE (occurrence: BE)
  Receive Date: 20121029
  Receipt Date: 20121121
  Transmission Date: 20130627
  Serious: Yes (Hospitalization)
  Sender: FDA-Public Use
  Company Number: BE-GLAXOSMITHKLINE-Z0016218B

PATIENT
  Age: 70 Year
  Sex: Male
  Weight: 62 kg

DRUGS (3)
  1. OFATUMUMAB [Suspect]
     Indication: CHRONIC LYMPHOCYTIC LEUKAEMIA
     Route: 042
     Dates: start: 20120605
  2. BENDAMUSTINE [Suspect]
     Indication: CHRONIC LYMPHOCYTIC LEUKAEMIA
     Route: 042
     Dates: start: 20120605
  3. TAVANIC [Concomitant]
     Indication: PYREXIA
     Dosage: 500MG Three times per day
     Route: 048
     Dates: start: 20120801, end: 20120808

REACTIONS (2)
  - Pyrexia [Recovered/Resolved]
  - Toxic skin eruption [Recovered/Resolved]
